FAERS Safety Report 10324700 (Version 2)
Quarter: 2015Q1

REPORT INFORMATION
  Report Type: Other
  Country: US (occurrence: US)
  Receive Date: 20140720
  Receipt Date: 20150223
  Transmission Date: 20150720
  Serious: Yes (Death, Hospitalization, Other)
  Sender: FDA-Public Use
  Company Number: US-GSKPPD-2014GSK034346

PATIENT
  Sex: Male

DRUGS (6)
  1. ASPIRIN. [Concomitant]
     Active Substance: ASPIRIN
  2. COZAAR [Concomitant]
     Active Substance: LOSARTAN POTASSIUM
  3. LOPRESSOR [Concomitant]
     Active Substance: METOPROLOL TARTRATE
  4. AVANDIA [Suspect]
     Active Substance: ROSIGLITAZONE MALEATE
     Indication: DIABETES MELLITUS
     Dosage: AVANDIA WAS NOT LISTED AMONG THE PATIENTS RECORDS REVIEWED
     Route: 048
  5. PLAVIX [Concomitant]
     Active Substance: CLOPIDOGREL BISULFATE
  6. NORVASC [Concomitant]
     Active Substance: AMLODIPINE BESYLATE

REACTIONS (3)
  - Cardiac failure congestive [Recovered/Resolved]
  - Hypotension [Fatal]
  - Acute myocardial infarction [Unknown]

NARRATIVE: CASE EVENT DATE: 20051102
